FAERS Safety Report 8427098-8 (Version None)
Quarter: 2012Q2

REPORT INFORMATION
  Report Type: 
  Country: None (occurrence: None)
  Receive Date: 20120611
  Receipt Date: 20120606
  Transmission Date: 20120825
  Serious: Yes (Other)
  Sender: FDA-Public Use
  Company Number: US-ROCHE-788932

PATIENT
  Sex: Male
  Weight: 74.91 kg

DRUGS (3)
  1. ACCUTANE [Suspect]
     Indication: ACNE
     Dosage: 20 MG TO 40 MG
     Route: 065
     Dates: start: 19990805, end: 20000101
  2. MINOCYCLINE HCL [Concomitant]
  3. BENZAMYCIN [Concomitant]

REACTIONS (3)
  - EMOTIONAL DISTRESS [None]
  - COLITIS ULCERATIVE [None]
  - INFLAMMATORY BOWEL DISEASE [None]
